FAERS Safety Report 9298702 (Version 1)
Quarter: 2013Q1

REPORT INFORMATION
  Report Type: Spontaneous
  Country: US (occurrence: None)
  Receive Date: 20121227
  Receipt Date: 20121227
  Transmission Date: 20140127
  Serious: Yes (Hospitalization)
  Sender: FDA-Public Use
  Company Number: PHEH2012US022060

PATIENT
  Age: 87 Year
  Sex: Female
  Weight: 62.6 kg

DRUGS (5)
  1. AFINITOR [Suspect]
     Indication: BREAST CANCER
     Dates: start: 20120911
  2. VITAMIN B (VITAMIN B COMPLEX) CAPSULE [Concomitant]
  3. IRON (IRON) TABLET [Concomitant]
  4. VITAMIN B12 (CYANOCOBALMIN) [Concomitant]
  5. VITAMIN D (ERGOCALCIFEROL) TABLET [Concomitant]

REACTIONS (2)
  - Dehydration [None]
  - Swollen tongue [None]
